FAERS Safety Report 24578303 (Version 2)
Quarter: 2024Q4

REPORT INFORMATION
  Report Type: Spontaneous
  Country: US (occurrence: None)
  Receive Date: 20241105
  Receipt Date: 20241114
  Transmission Date: 20250115
  Serious: Yes (Death)
  Sender: MDD OPERATIONS
  Company Number: US-MDD US Operations-MDD202410-004024

PATIENT
  Age: 67 Year
  Sex: Male

DRUGS (1)
  1. APOKYN [Suspect]
     Active Substance: APOMORPHINE HYDROCHLORIDE
     Indication: Product used for unknown indication
     Dosage: 30MG/3ML
     Route: 058

REACTIONS (1)
  - Cardiovascular disorder [Fatal]

NARRATIVE: CASE EVENT DATE: 20231119
